FAERS Safety Report 6626144-1 (Version None)
Quarter: 2010Q1

REPORT INFORMATION
  Report Type: 
  Country: None (occurrence: None)
  Receive Date: 20100310
  Receipt Date: 20100225
  Transmission Date: 20100710
  Serious: Yes (Hospitalization)
  Sender: FDA-Public Use
  Company Number: PHHY2010TR11035

PATIENT
  Sex: Male
  Weight: 26 kg

DRUGS (3)
  1. TRILEPTAL [Suspect]
     Route: 048
  2. HUMATROPE [Concomitant]
     Indication: GROWTH HORMONE DEFICIENCY
  3. LEVOTIRON [Concomitant]

REACTIONS (4)
  - HAEMATOCRIT DECREASED [None]
  - HAEMOGLOBIN DECREASED [None]
  - MUCOSAL INFLAMMATION [None]
  - RASH MACULO-PAPULAR [None]
